FAERS Safety Report 7645719-4 (Version None)
Quarter: 2011Q3

REPORT INFORMATION
  Report Type: 
  Country: None (occurrence: None)
  Receive Date: 20110729
  Receipt Date: 20110727
  Transmission Date: 20111222
  Serious: Yes (Death, Hospitalization)
  Sender: FDA-Public Use
  Company Number: CA-ABBOTT-11P-028-0732848-00

PATIENT
  Sex: Male
  Weight: 63.56 kg

DRUGS (1)
  1. LUPRON DEPOT [Suspect]
     Indication: PROSTATE CANCER
     Dates: start: 20100810, end: 20110405

REACTIONS (2)
  - PROSTATE CANCER [None]
  - PULMONARY OEDEMA [None]
